FAERS Safety Report 4544404-5 (Version None)
Quarter: 2005Q1

REPORT INFORMATION
  Report Type: 
  Country: None (occurrence: None)
  Receive Date: 20050104
  Receipt Date: 20041229
  Transmission Date: 20050727
  Serious: Yes (Hospitalization, Disabling)
  Sender: FDA-Public Use
  Company Number: US-MERCK-0412USA03282

PATIENT
  Age: 49 Year
  Sex: Female

DRUGS (3)
  1. VIOXX [Suspect]
     Indication: ARTHRITIS
     Route: 048
     Dates: start: 19990101, end: 20041001
  2. PRILOSEC [Concomitant]
     Route: 048
  3. PREMARIN [Concomitant]
     Route: 065

REACTIONS (2)
  - DYSPNOEA [None]
  - NECK PAIN [None]
